FAERS Safety Report 23329576 (Version 2)
Quarter: 2024Q1

REPORT INFORMATION
  Report Type: Report from Study
  Country: US (occurrence: US)
  Receive Date: 20231222
  Receipt Date: 20240110
  Transmission Date: 20240410
  Serious: No
  Sender: FDA-Public Use
  Company Number: US-ACADIA PHARMACEUTICALS INC.-ACA-2023-PIM-005592

PATIENT
  Sex: Female

DRUGS (2)
  1. NUPLAZID [Suspect]
     Active Substance: PIMAVANSERIN TARTRATE
     Indication: Bipolar II disorder
     Dosage: 10 MILLIGRAM, QD
     Route: 048
     Dates: start: 202310
  2. NUPLAZID [Suspect]
     Active Substance: PIMAVANSERIN TARTRATE
     Indication: Bipolar disorder

REACTIONS (3)
  - Insomnia [Unknown]
  - Constipation [Unknown]
  - Off label use [Not Recovered/Not Resolved]
